FAERS Safety Report 20810344 (Version 1)
Quarter: 2022Q2

REPORT INFORMATION
  Report Type: Spontaneous
  Country: US (occurrence: None)
  Receive Date: 20220510
  Receipt Date: 20220510
  Transmission Date: 20220721
  Serious: No
  Sender: FDA-Public Use
  Company Number: None

PATIENT
  Sex: Female

DRUGS (1)
  1. TALTZ [Suspect]
     Active Substance: IXEKIZUMAB
     Indication: Psoriasis
     Dosage: 80MG EVERY 2 WEEKS SUBCUTANEOUS?
     Route: 058
     Dates: start: 202202, end: 202203

REACTIONS (4)
  - Injection site swelling [None]
  - Injection site pruritus [None]
  - Therapy non-responder [None]
  - Alopecia [None]
